FAERS Safety Report 8993690 (Version 1)
Quarter: 2013Q1

REPORT INFORMATION
  Report Type: Spontaneous
  Country: US (occurrence: US)
  Receive Date: 20130102
  Receipt Date: 20130102
  Transmission Date: 20140127
  Serious: No
  Sender: FDA-Public Use
  Company Number: US-AMGEN-USASP2012083272

PATIENT
  Age: 60 Year
  Sex: Male
  Weight: 79.82 kg

DRUGS (8)
  1. ENBREL [Suspect]
     Indication: PSORIATIC ARTHROPATHY
     Dosage: 50 MG, QWK
     Route: 058
     Dates: start: 20120202, end: 20121221
  2. DIOVAN HCT [Concomitant]
     Dosage: 80-12.5 MG 1 TABLET DAILY
     Route: 048
  3. ECOTRIN [Concomitant]
     Dosage: 325 MG, UNK
  4. FOLIC ACID [Concomitant]
     Dosage: 1 MG, QD AS DIRECTED
     Route: 048
     Dates: start: 20101221
  5. METHOTREXATE [Concomitant]
     Dosage: 2.5 MG, QWK 4 TABLET WEEKLY
     Route: 048
     Dates: start: 20101221
  6. METROGEL [Concomitant]
     Dosage: 1 %, APPLY TO FACE EVERY DAY AS NEEDED
     Dates: start: 20110226
  7. NORVASC [Concomitant]
     Dosage: 5 MG, QD
     Route: 048
  8. SIMVASTATIN [Concomitant]
     Dosage: 20 MG, QD
     Route: 048

REACTIONS (2)
  - Pruritus generalised [Not Recovered/Not Resolved]
  - Paraesthesia [Not Recovered/Not Resolved]
